FAERS Safety Report 18904818 (Version 2)
Quarter: 2021Q1

REPORT INFORMATION
  Report Type: Spontaneous
  Country: US (occurrence: US)
  Receive Date: 20210217
  Receipt Date: 20210226
  Transmission Date: 20210420
  Serious: Yes (Other)
  Sender: FDA-Public Use
  Company Number: US-009507513-2102USA004639

PATIENT
  Age: 55 Year
  Sex: Female

DRUGS (2)
  1. TEMODAR [Concomitant]
     Active Substance: TEMOZOLOMIDE
     Indication: METASTASES TO CENTRAL NERVOUS SYSTEM
  2. KEYTRUDA [Suspect]
     Active Substance: PEMBROLIZUMAB
     Indication: METASTATIC MALIGNANT MELANOMA
     Dosage: 2 MILLIGRAM/KILOGRAM, 12 DOSES

REACTIONS (3)
  - Ototoxicity [Unknown]
  - Immune-mediated pancreatitis [Unknown]
  - Immune-mediated thyroiditis [Unknown]
